FAERS Safety Report 11232800 (Version 1)
Quarter: 2015Q3

REPORT INFORMATION
  Report Type: Spontaneous
  Country: NL (occurrence: NL)
  Receive Date: 20150701
  Receipt Date: 20150701
  Transmission Date: 20151125
  Serious: Yes (Life-Threatening, Hospitalization)
  Sender: FDA-Public Use
  Company Number: NL-PFIZER INC-2015217009

PATIENT
  Sex: Female
  Weight: 3 kg

DRUGS (1)
  1. SERTRALINE HCL [Suspect]
     Active Substance: SERTRALINE HYDROCHLORIDE
     Dosage: 50 MG, 1X/DAY
     Route: 064
     Dates: start: 2015

REACTIONS (3)
  - Drug withdrawal syndrome neonatal [Recovering/Resolving]
  - Maternal exposure during pregnancy [Recovering/Resolving]
  - Congenital pulmonary hypertension [Recovered/Resolved]

NARRATIVE: CASE EVENT DATE: 20150617
